FAERS Safety Report 4674241-2 (Version None)
Quarter: 2005Q2

REPORT INFORMATION
  Report Type: 
  Country: None (occurrence: None)
  Receive Date: 20050524
  Receipt Date: 20050512
  Transmission Date: 20051028
  Serious: Yes (Hospitalization)
  Sender: FDA-Public Use
  Company Number: 2005075009

PATIENT
  Age: 53 Year
  Sex: Female
  Weight: 99.7913 kg

DRUGS (10)
  1. CELEBREX [Suspect]
     Indication: ILL-DEFINED DISORDER
     Dosage: (200 MG), ORAL
     Route: 048
     Dates: start: 20040101
  2. BEXTRA [Suspect]
     Indication: ARTHRITIS
     Dosage: 10 MG (10 MG, 1 IN 1 D), ORAL
     Route: 048
     Dates: start: 20041001, end: 20050301
  3. LORTAB (HYDROCODEON BITARTRATE, PARACETAMOL) [Concomitant]
  4. ZOLOFT [Concomitant]
  5. LASIX [Concomitant]
  6. AMITRIPTYLINE HCL [Concomitant]
  7. DIAZEPAM [Concomitant]
  8. GLUCOVANCE [Concomitant]
  9. LISINOPRIL W/HYDROCHLOROTHIAZIDE (HYDROCHLOROTHIAZIDE LISINOPRIL) [Concomitant]
  10. AVANDIA [Concomitant]

REACTIONS (3)
  - ARTHRITIS [None]
  - FACIAL PALSY [None]
  - LOWER LIMB FRACTURE [None]
